FAERS Safety Report 5346068-X (Version None)
Quarter: 2007Q2

REPORT INFORMATION
  Report Type: 
  Country: None (occurrence: None)
  Receive Date: 20070605
  Receipt Date: 20070531
  Transmission Date: 20071010
  Serious: Yes (Hospitalization)
  Sender: FDA-Public Use
  Company Number: FR-MERCK-0705USA05804

PATIENT
  Age: 83 Year
  Sex: Male

DRUGS (6)
  1. MODURETIC 5-50 [Suspect]
     Indication: ESSENTIAL HYPERTENSION
     Route: 048
     Dates: start: 20060701, end: 20070111
  2. TANGANIL [Concomitant]
     Route: 048
  3. TANGANIL [Concomitant]
     Indication: ESSENTIAL HYPERTENSION
     Route: 048
  4. IMOVANE [Concomitant]
     Route: 048
  5. STILNOX [Concomitant]
     Route: 048
  6. METFORMIN [Concomitant]
     Indication: DIABETES MELLITUS
     Route: 048

REACTIONS (3)
  - ECZEMA [None]
  - RASH PAPULAR [None]
  - SKIN EXFOLIATION [None]
